FAERS Safety Report 10901772 (Version 1)
Quarter: 2015Q1

REPORT INFORMATION
  Report Type: Report from Study
  Country: US (occurrence: US)
  Receive Date: 20150310
  Receipt Date: 20150310
  Transmission Date: 20150721
  Serious: Yes (Hospitalization)
  Sender: FDA-Public Use
  Company Number: US-ABBVIE-15K-163-1354780-00

PATIENT
  Age: 78 Year
  Sex: Female
  Weight: 68.55 kg

DRUGS (2)
  1. LEFLUNOMIDE. [Concomitant]
     Active Substance: LEFLUNOMIDE
     Indication: RHEUMATOID ARTHRITIS
  2. HUMIRA [Suspect]
     Active Substance: ADALIMUMAB
     Indication: RHEUMATOID ARTHRITIS
     Route: 065
     Dates: start: 201412, end: 201412

REACTIONS (5)
  - Oxygen saturation decreased [Unknown]
  - Confusional state [Recovered/Resolved]
  - Cardiac disorder [Unknown]
  - Pneumonia [Not Recovered/Not Resolved]
  - Rales [Not Recovered/Not Resolved]

NARRATIVE: CASE EVENT DATE: 201501
